FAERS Safety Report 19173554 (Version 1)
Quarter: 2021Q2

REPORT INFORMATION
  Report Type: Spontaneous
  Country: US (occurrence: US)
  Receive Date: 20210423
  Receipt Date: 20210423
  Transmission Date: 20210717
  Serious: Yes (Death)
  Sender: FDA-Public Use
  Company Number: None

PATIENT
  Age: 54 Year
  Sex: Female

DRUGS (1)
  1. TALZENNA [Suspect]
     Active Substance: TALAZOPARIB TOSYLATE
     Indication: METASTASES TO LYMPH NODES
     Route: 048
     Dates: start: 20200918, end: 20210414

REACTIONS (1)
  - Death [None]

NARRATIVE: CASE EVENT DATE: 20210414
